FAERS Safety Report 11719547 (Version 2)
Quarter: 2016Q1

REPORT INFORMATION
  Report Type: Report from Study
  Country: US (occurrence: US)
  Receive Date: 20151110
  Receipt Date: 20160108
  Transmission Date: 20160525
  Serious: Yes (Death, Other)
  Sender: FDA-Public Use
  Company Number: US-BAYER-2015-419347

PATIENT
  Age: 75 Year
  Sex: Male

DRUGS (16)
  1. AMLODIPINE [Concomitant]
     Active Substance: AMLODIPINE BESYLATE
  2. OMEPRAZOLE. [Concomitant]
     Active Substance: OMEPRAZOLE
  3. IBUPROFEN. [Concomitant]
     Active Substance: IBUPROFEN
  4. FUROSEMIDE. [Concomitant]
     Active Substance: FUROSEMIDE
  5. METOPROLOL. [Concomitant]
     Active Substance: METOPROLOL
  6. LATANOPROST. [Concomitant]
     Active Substance: LATANOPROST
  7. METOCLOPRAM [Concomitant]
     Active Substance: METOCLOPRAMIDE
  8. SERTRALINE [Concomitant]
     Active Substance: SERTRALINE HYDROCHLORIDE
  9. CLOPIDOGREL [Concomitant]
     Active Substance: CLOPIDOGREL BISULFATE
  10. NEXAVAR [Suspect]
     Active Substance: SORAFENIB
     Indication: HEPATIC CANCER
     Dosage: 400 MG, BID
     Route: 048
     Dates: start: 20150721, end: 2015
  11. CLONIDINE. [Concomitant]
     Active Substance: CLONIDINE
  12. LOSARTAN POTASSIUM. [Concomitant]
     Active Substance: LOSARTAN POTASSIUM
  13. NEXAVAR [Suspect]
     Active Substance: SORAFENIB
     Indication: HEPATIC CANCER
     Dosage: 400 MG, BID
     Route: 048
     Dates: start: 2015, end: 20150928
  14. APAP W/CODEINE [Concomitant]
  15. HUMULIN L [Concomitant]
     Active Substance: INSULIN HUMAN
  16. OXYCODONE [Concomitant]
     Active Substance: OXYCODONE

REACTIONS (6)
  - Therapy cessation [None]
  - Death [Fatal]
  - Feeding disorder [Not Recovered/Not Resolved]
  - Abdominal discomfort [Not Recovered/Not Resolved]
  - Decreased appetite [Not Recovered/Not Resolved]
  - Diarrhoea [Not Recovered/Not Resolved]

NARRATIVE: CASE EVENT DATE: 20150721
